FAERS Safety Report 6313087-6 (Version None)
Quarter: 2009Q3

REPORT INFORMATION
  Report Type: 
  Country: None (occurrence: None)
  Receive Date: 20090818
  Receipt Date: 20090806
  Transmission Date: 20100115
  Serious: Yes (Hospitalization)
  Sender: FDA-Public Use
  Company Number: FR-PFIZER INC-2009253812

PATIENT
  Age: 96 Year

DRUGS (11)
  1. ATARAX [Suspect]
     Dosage: 12.5 MG, 2X/DAY
     Route: 048
  2. FUROSEMIDE [Suspect]
     Dosage: 20 MG, 4X/DAY
  3. MEMANTINE [Suspect]
     Dosage: 2 DF, 1X/DAY
     Route: 048
  4. VASTAREL [Suspect]
     Dosage: 35 MG, 2X/DAY
     Route: 048
  5. TRAMADOL HYDROCHLORIDE AND ACETAMINOPHEN [Suspect]
     Dosage: 1 DF, 1X/DAY
     Route: 048
  6. DIFFU K [Concomitant]
  7. LANSOPRAZOLE [Concomitant]
  8. FERROUS SULFATE/FOLIC ACID [Concomitant]
  9. CYANOCOBALAMIN [Concomitant]
     Route: 030
  10. FIXICAL VITAMINE D3 [Concomitant]
  11. SOLUPRED [Concomitant]

REACTIONS (3)
  - ABNORMAL BEHAVIOUR [None]
  - DRUG INTERACTION [None]
  - FALL [None]
